FAERS Safety Report 5843440-6 (Version None)
Quarter: 2008Q3

REPORT INFORMATION
  Report Type: 
  Country: None (occurrence: None)
  Receive Date: 20080813
  Receipt Date: 20080808
  Transmission Date: 20090109
  Serious: Yes (Hospitalization)
  Sender: FDA-Public Use
  Company Number: NL-WATSON-2008-04794

PATIENT
  Age: 52 Year
  Sex: Female

DRUGS (2)
  1. FIORICET [Suspect]
     Indication: PAIN
     Dosage: UNK
     Route: 065
  2. FLUCLOXICILLIN [Suspect]
     Indication: STAPHYLOCOCCAL INFECTION
     Dosage: 12 G, DAILY
     Route: 065

REACTIONS (4)
  - ANION GAP INCREASED [None]
  - METABOLIC ACIDOSIS [None]
  - POTENTIATING DRUG INTERACTION [None]
  - PYROGLUTAMATE INCREASED [None]
